FAERS Safety Report 9625259 (Version 1)
Quarter: 2013Q4

REPORT INFORMATION
  Report Type: Spontaneous
  Country: US (occurrence: US)
  Receive Date: 20131016
  Receipt Date: 20131016
  Transmission Date: 20140711
  Serious: No
  Sender: FDA-Public Use
  Company Number: US-PFIZER INC-2013293906

PATIENT
  Age: 57 Year
  Sex: Female
  Weight: 109 kg

DRUGS (4)
  1. NEURONTIN [Suspect]
     Indication: NEUROPATHY PERIPHERAL
     Dosage: 100 MG, 3X/DAY
     Dates: start: 20121125
  2. LASIX [Concomitant]
     Indication: DIURETIC THERAPY
     Dosage: 40 MG, 3X/DAY
  3. MAXZIDE [Concomitant]
     Indication: DIURETIC THERAPY
     Dosage: TRIAMTERENE 50MG/ HYDROCHLOROTHIAZIDE 25MG, DAILY
  4. POTASSIUM [Concomitant]
     Dosage: 750 MG, TWO TO THREE TIMES A DAY

REACTIONS (3)
  - Limb discomfort [Not Recovered/Not Resolved]
  - Arthropathy [Not Recovered/Not Resolved]
  - Hypoaesthesia [Not Recovered/Not Resolved]
